FAERS Safety Report 6649321-2 (Version None)
Quarter: 2010Q1

REPORT INFORMATION
  Report Type: 
  Country: None (occurrence: None)
  Receive Date: 20100322
  Receipt Date: 20100305
  Transmission Date: 20100710
  Serious: Yes (Life-Threatening)
  Sender: FDA-Public Use
  Company Number: 1-21561381

PATIENT
  Age: 79 Year
  Sex: Female
  Weight: 80.831 kg

DRUGS (12)
  1. ROCURONIUM INJECTION 10 MG/ML, 5 ML VAIL [Suspect]
     Indication: SURGERY
     Dosage: 70 MG (TOTAL DOSE)
     Dates: start: 20100302, end: 20100302
  2. FENTANYL-100 [Suspect]
     Indication: INDUCTION OF ANAESTHESIA
     Dosage: 100 MCG, ONCE
     Dates: start: 20100302, end: 20100302
  3. OMEPRAZOLE [Concomitant]
  4. ZOCOR [Concomitant]
  5. AMITRIPTYLINE HCL [Concomitant]
  6. ACTOS [Concomitant]
  7. ASPIRIN [Concomitant]
  8. METOPROLOL SUCCINATE [Concomitant]
  9. GLIMEPIRIDE [Concomitant]
  10. ALEVE [Concomitant]
  11. CENTRUM SILVER [Concomitant]
  12. PLAVIX [Concomitant]

REACTIONS (2)
  - DELAYED RECOVERY FROM ANAESTHESIA [None]
  - PULMONARY FUNCTION TEST DECREASED [None]
